FAERS Safety Report 6254023-0 (Version None)
Quarter: 2009Q3

REPORT INFORMATION
  Report Type: 
  Country: None (occurrence: None)
  Receive Date: 20090702
  Receipt Date: 20090625
  Transmission Date: 20100115
  Serious: Yes (Other)
  Sender: FDA-Public Use
  Company Number: GB-ROCHE-640477

PATIENT
  Age: 18 Year
  Sex: Female

DRUGS (4)
  1. CLONAZEPAM [Suspect]
     Indication: DRUG USE FOR UNKNOWN INDICATION
     Dosage: DOSING AMONT- 0.5 MG TO 1.5 MG
     Route: 065
     Dates: start: 20090608
  2. CLOZARIL [Suspect]
     Indication: DRUG USE FOR UNKNOWN INDICATION
     Route: 065
     Dates: start: 20090608
  3. LAMOTRIGINE [Concomitant]
     Indication: SCHIZOPHRENIA
  4. OLANZAPINE [Concomitant]
     Indication: SCHIZOPHRENIA

REACTIONS (4)
  - ACCIDENTAL EXPOSURE [None]
  - BLOOD PRESSURE INCREASED [None]
  - HEART RATE INCREASED [None]
  - VOMITING [None]
